FAERS Safety Report 19164801 (Version 1)
Quarter: 2021Q2

REPORT INFORMATION
  Report Type: Spontaneous
  Country: ES (occurrence: ES)
  Receive Date: 20210421
  Receipt Date: 20210421
  Transmission Date: 20210717
  Serious: Yes (Hospitalization, Other)
  Sender: FDA-Public Use
  Company Number: ES-PFIZER INC-2021273515

PATIENT
  Age: 32 Year
  Sex: Male

DRUGS (2)
  1. INSULIN [Concomitant]
     Active Substance: INSULIN NOS
     Indication: TYPE 1 DIABETES MELLITUS
     Dosage: CONTINUOUS INSULIN INFUSION
  2. PHENYTOIN SODIUM. [Suspect]
     Active Substance: PHENYTOIN SODIUM
     Indication: EPILEPSY
     Dosage: 100 MG, EVERY 8 HR

REACTIONS (9)
  - Acquired immunodeficiency syndrome [Recovering/Resolving]
  - Hypogammaglobulinaemia [Recovering/Resolving]
  - Weight decreased [Recovered/Resolved]
  - Tracheobronchitis [Recovered/Resolved]
  - Diarrhoea [Recovered/Resolved]
  - Pyrexia [Unknown]
  - Neutropenia [Unknown]
  - Sinusitis [Recovered/Resolved]
  - Rhinorrhoea [Recovered/Resolved]
